FAERS Safety Report 5267008-8 (Version None)
Quarter: 2007Q1

REPORT INFORMATION
  Report Type: 
  Country: None (occurrence: None)
  Receive Date: 20070316
  Receipt Date: 20070305
  Transmission Date: 20070707
  Serious: Yes (Other)
  Sender: FDA-Public Use
  Company Number: PHBS2007BR03375

PATIENT
  Age: 8 Year
  Sex: Female
  Weight: 22 kg

DRUGS (1)
  1. TEGRETOL [Suspect]
     Indication: CEREBRAL DISORDER
     Dosage: 2 TABLETS OF 200 MG/DAY
     Route: 048

REACTIONS (7)
  - DIARRHOEA [None]
  - EPISTAXIS [None]
  - HAEMATOMA [None]
  - HYPERSENSITIVITY [None]
  - NAUSEA [None]
  - PETECHIAE [None]
  - RASH MACULAR [None]
